FAERS Safety Report 19657459 (Version 2)
Quarter: 2022Q1

REPORT INFORMATION
  Report Type: Report from Study
  Country: US (occurrence: US)
  Receive Date: 20210804
  Receipt Date: 20220214
  Transmission Date: 20220423
  Serious: No
  Sender: FDA-Public Use
  Company Number: US-NOVARTISTESTPH-NVSC2021US173766

PATIENT
  Sex: Female

DRUGS (1)
  1. KISQALI FEMARA CO-PACK [Suspect]
     Active Substance: LETROZOLE\RIBOCICLIB
     Indication: Neoplasm malignant
     Dosage: 400 MG
     Route: 048
     Dates: start: 20210617

REACTIONS (5)
  - Dizziness [Unknown]
  - Fatigue [Unknown]
  - Rash [Unknown]
  - Urticaria [Unknown]
  - Product use in unapproved indication [Unknown]
